FAERS Safety Report 9809465 (Version 2)
Quarter: 2014Q1

REPORT INFORMATION
  Report Type: Spontaneous
  Country: US (occurrence: US)
  Receive Date: 20140110
  Receipt Date: 20140110
  Transmission Date: 20141002
  Serious: Yes (Hospitalization)
  Sender: FDA-Public Use
  Company Number: US-SANOFI-AVENTIS-2011SA064773

PATIENT
  Age: 47 Year
  Sex: Female
  Weight: 91 kg

DRUGS (11)
  1. PLAVIX [Suspect]
     Indication: ACUTE CORONARY SYNDROME
     Route: 048
     Dates: start: 20110907, end: 20110907
  2. PLAVIX [Suspect]
     Indication: ACUTE CORONARY SYNDROME
     Route: 048
     Dates: start: 20110907, end: 20110908
  3. ASPIRIN [Suspect]
     Indication: ACUTE CORONARY SYNDROME
     Route: 048
     Dates: start: 20110907, end: 20110917
  4. OTAMIXABAN [Suspect]
     Indication: ACUTE CORONARY SYNDROME
     Route: 042
     Dates: start: 20110908, end: 20110908
  5. LOVENOX [Concomitant]
     Route: 058
     Dates: start: 20110907, end: 20110908
  6. NORVASC /DEN/ [Concomitant]
     Dates: start: 20110907, end: 20110908
  7. VERAPAMIL [Concomitant]
     Dates: start: 20110908, end: 20110908
  8. NAPROXEN [Concomitant]
     Dates: start: 20110907, end: 20110907
  9. LOPRESSOR [Concomitant]
     Dates: start: 20110907, end: 20110908
  10. LISINOPRIL [Concomitant]
     Dates: start: 20110907, end: 20110908
  11. LIPITOR /UNK/ [Concomitant]
     Dates: start: 20110907, end: 20110914

REACTIONS (2)
  - Retroperitoneal haematoma [Recovered/Resolved]
  - Post procedural haematoma [Recovered/Resolved]
